FAERS Safety Report 10044231 (Version 1)
Quarter: 2014Q1

REPORT INFORMATION
  Report Type: Spontaneous
  Country: US (occurrence: US)
  Receive Date: 20140328
  Receipt Date: 20140328
  Transmission Date: 20141002
  Serious: No
  Sender: FDA-Public Use
  Company Number: US-B.I. PHARMACEUTICALS,INC./RIDGEFIELD-2014-BI-12736BP

PATIENT
  Age: 59 Year
  Sex: Female
  Weight: 82 kg

DRUGS (13)
  1. SPIRIVA [Suspect]
     Indication: EMPHYSEMA
     Dosage: 18 MCG
     Route: 048
     Dates: start: 201312
  2. SYMBICORT [Concomitant]
     Indication: EMPHYSEMA
     Dosage: 1 PUF
     Route: 055
  3. BUTRANS [Concomitant]
     Indication: PAIN
     Dosage: 1.4286 MCG
     Route: 061
  4. CREON [Concomitant]
     Indication: DYSPEPSIA
     Dosage: 72000 MG
     Route: 048
  5. CREON [Concomitant]
     Dosage: 24000 MG
     Route: 048
  6. TIZANIDINE HCL [Concomitant]
     Indication: MUSCLE SPASMS
     Dosage: PRN
     Route: 048
  7. BUTISONADE [Concomitant]
     Indication: GASTROINTESTINAL DISORDER
     Dosage: 3 MG
     Route: 048
  8. ESTRADIOL [Concomitant]
     Indication: HOT FLUSH
     Dosage: 2 MG
     Route: 048
  9. CLOBETAZAL PROPIONITE [Concomitant]
     Indication: FUNGAL INFECTION
     Dosage: 4 MG
     Route: 048
  10. ONDANSETRON [Concomitant]
     Indication: NAUSEA
     Dosage: PRN
     Route: 055
  11. ONDANSETRON [Concomitant]
     Indication: VOMITING
  12. PANTOPRAZOLE [Concomitant]
     Indication: GASTROOESOPHAGEAL REFLUX DISEASE
     Dosage: 80 MG
     Route: 048
  13. PANTOPRAZOLE [Concomitant]
     Indication: HIATUS HERNIA

REACTIONS (2)
  - Incorrect route of drug administration [Recovered/Resolved]
  - Incorrect route of drug administration [Recovered/Resolved]
